FAERS Safety Report 12491890 (Version 2)
Quarter: 2016Q3

REPORT INFORMATION
  Report Type: Spontaneous
  Country: ES (occurrence: ES)
  Receive Date: 20160623
  Receipt Date: 20160805
  Transmission Date: 20161109
  Serious: Yes (Hospitalization)
  Sender: FDA-Public Use
  Company Number: ES-JNJFOC-20160614695

PATIENT
  Sex: Male
  Weight: 73 kg

DRUGS (7)
  1. VALACICLOVIR [Concomitant]
     Active Substance: VALACYCLOVIR HYDROCHLORIDE
     Route: 065
  2. PARACETAMOL [Concomitant]
     Active Substance: ACETAMINOPHEN
     Dosage: 1 G VIAL EVERY 8 HOURS
     Route: 042
  3. SULFAMETOXAZOL/TRIMETOPRIM [Concomitant]
     Dosage: 800/160 MG
     Route: 065
  4. IBRUTINIB [Suspect]
     Active Substance: IBRUTINIB
     Indication: MANTLE CELL LYMPHOMA
     Dosage: 560
     Route: 048
     Dates: start: 20160527, end: 20160614
  5. OMEPRAZOLE. [Concomitant]
     Active Substance: OMEPRAZOLE
     Dosage: FASTING (EVERY 24 HOURS, 8 HOURS)
     Route: 048
  6. LACTOSE [Concomitant]
     Active Substance: LACTOSE
     Dosage: 10 G, 15 ML, BREAKFAST-LUNCH-DINNER
     Route: 048
  7. LORMETAZEPAM [Concomitant]
     Active Substance: LORMETAZEPAM
     Route: 048

REACTIONS (2)
  - Haemoglobin decreased [None]
  - Haemothorax [Recovered/Resolved]

NARRATIVE: CASE EVENT DATE: 20160614
